FAERS Safety Report 15558383 (Version 1)
Quarter: 2018Q4

REPORT INFORMATION
  Report Type: Other
  Country: KR (occurrence: KR)
  Receive Date: 20181028
  Receipt Date: 20181028
  Transmission Date: 20190205
  Serious: No
  Sender: FDA-Public Use
  Company Number: KR-LEADING PHARMA, LLC-2058153

PATIENT
  Age: 70 Year
  Sex: Female

DRUGS (1)
  1. FUROSEMIDE TABLETS , 20 MG, 40 MG AND 80 MG [Suspect]
     Active Substance: FUROSEMIDE
     Indication: GENERALISED OEDEMA

REACTIONS (1)
  - Neuromyopathy [Recovered/Resolved]
